FAERS Safety Report 6865247-3 (Version None)
Quarter: 2010Q3

REPORT INFORMATION
  Report Type: 
  Country: None (occurrence: None)
  Receive Date: 20100720
  Receipt Date: 20100709
  Transmission Date: 20110219
  Serious: Yes (Disabling)
  Sender: FDA-Public Use
  Company Number: OSCN-NO-0902S-0122

PATIENT
  Age: 26 Year
  Sex: Male
  Weight: 50 kg

DRUGS (10)
  1. OMNISCAN [Suspect]
     Indication: PRODUCT USED FOR UNKNOWN INDICATION
     Dosage: 10 ML, I.E. 0.1 MMOL/KG, SINGLE DOSE, I.V.; 0.1 MMOL/KG, SINGLE DOSE, I.V.
     Route: 042
     Dates: start: 20020402, end: 20020402
  2. OMNISCAN [Suspect]
     Indication: RENAL TRANSPLANT
     Dosage: 10 ML, I.E. 0.1 MMOL/KG, SINGLE DOSE, I.V.; 0.1 MMOL/KG, SINGLE DOSE, I.V.
     Route: 042
     Dates: start: 20020402, end: 20020402
  3. OMNISCAN [Suspect]
     Indication: PRODUCT USED FOR UNKNOWN INDICATION
     Dosage: 10 ML, I.E. 0.1 MMOL/KG, SINGLE DOSE, I.V.; 0.1 MMOL/KG, SINGLE DOSE, I.V.
     Route: 042
     Dates: start: 20020603, end: 20020603
  4. OMNISCAN [Suspect]
     Indication: RENAL TRANSPLANT
     Dosage: 10 ML, I.E. 0.1 MMOL/KG, SINGLE DOSE, I.V.; 0.1 MMOL/KG, SINGLE DOSE, I.V.
     Route: 042
     Dates: start: 20020603, end: 20020603
  5. EPOETIN BETA [Concomitant]
  6. ATENOLOL [Concomitant]
  7. IMMUNOSUPPRESSIVE THERAPIES [Concomitant]
  8. LOSARTAN [Concomitant]
  9. EPOETIN ALPHA [Concomitant]
  10. IRON SUPPLEMENTATION [Concomitant]

REACTIONS (4)
  - ANTIPHOSPHOLIPID ANTIBODIES POSITIVE [None]
  - CREATININE RENAL CLEARANCE DECREASED [None]
  - NEPHROGENIC SYSTEMIC FIBROSIS [None]
  - PRURITUS [None]
